FAERS Safety Report 18737204 (Version 3)
Quarter: 2021Q1

REPORT INFORMATION
  Report Type: Report from Study
  Country: US (occurrence: US)
  Receive Date: 20210113
  Receipt Date: 20210309
  Transmission Date: 20210419
  Serious: Yes (Hospitalization, Other)
  Sender: FDA-Public Use
  Company Number: NVSC2021US005625

PATIENT
  Age: 66 Year
  Sex: Male

DRUGS (2)
  1. XARELTO [Concomitant]
     Active Substance: RIVAROXABAN
     Indication: PRODUCT USED FOR UNKNOWN INDICATION
     Dosage: UNK (WHICH HE STARTED 5 YEARS AGO, CONSISTENTLY)
     Route: 065
  2. ENTRESTO [Suspect]
     Active Substance: SACUBITRIL\VALSARTAN
     Indication: CARDIAC FAILURE
     Dosage: 50 MG, BID (24/26 MG)
     Route: 048
     Dates: start: 20200104

REACTIONS (9)
  - Oedema peripheral [Not Recovered/Not Resolved]
  - Pneumonia [Unknown]
  - Dyspnoea [Unknown]
  - Cardiac disorder [Unknown]
  - Gait disturbance [Unknown]
  - Respiratory tract infection [Unknown]
  - Cough [Unknown]
  - Cardiac failure [Unknown]
  - Fatigue [Unknown]

NARRATIVE: CASE EVENT DATE: 20201227
